FAERS Safety Report 21149090 (Version 3)
Quarter: 2023Q1

REPORT INFORMATION
  Report Type: Spontaneous
  Country: US (occurrence: US)
  Receive Date: 20220729
  Receipt Date: 20230224
  Transmission Date: 20230418
  Serious: Yes (Hospitalization, Other)
  Sender: FDA-Public Use
  Company Number: US-JNJFOC-20220749422

PATIENT
  Age: 28 Year
  Sex: Female
  Weight: 63.560 kg

DRUGS (5)
  1. STELARA [Suspect]
     Active Substance: USTEKINUMAB
     Indication: Product used for unknown indication
     Dosage: 90 MG, 1 ML
     Route: 058
     Dates: start: 20210826
  2. STELARA [Suspect]
     Active Substance: USTEKINUMAB
  3. IBUPROFEN [Concomitant]
     Active Substance: IBUPROFEN
  4. TRI FEMYNOR [Concomitant]
     Active Substance: ETHINYL ESTRADIOL\NORGESTIMATE
  5. IUD NOS [Concomitant]
     Active Substance: COPPER OR LEVONORGESTREL
     Dates: start: 202102

REACTIONS (4)
  - Malignant glioma [Recovered/Resolved]
  - Eye pruritus [Unknown]
  - Injection site pain [Unknown]
  - Back pain [Unknown]

NARRATIVE: CASE EVENT DATE: 20210826
